FAERS Safety Report 25594317 (Version 1)
Quarter: 2025Q3

REPORT INFORMATION
  Report Type: Report from Study
  Country: EU (occurrence: EU)
  Receive Date: 20250723
  Receipt Date: 20250723
  Transmission Date: 20251021
  Serious: Yes (Other)
  Sender: AMGEN
  Company Number: EU-ROCHE-10000333612

PATIENT

DRUGS (4)
  1. PANITUMUMAB [Suspect]
     Active Substance: PANITUMUMAB
     Indication: Neoplasm malignant
     Dosage: ON 25-NOV-2024, THE PATIENT RECEIVED THE MOST RECENT DOSE OF CANCER TREATMENT PRIOR TO AE/SAE ONSET.
     Route: 040
     Dates: start: 20241111
  2. OXALIPLATIN [Suspect]
     Active Substance: OXALIPLATIN
     Indication: Neoplasm malignant
     Dosage: ON 25-NOV-2024, PATIENT RECEIVED THE MOST RECENT DOSE OF CANCER TREATMENT PRIOR TO AE/SAE ONSET.
     Route: 040
     Dates: start: 20241028
  3. OXALIPLATIN [Suspect]
     Active Substance: OXALIPLATIN
     Dosage: ON 25-NOV-2024, PATIENT RECEIVED THE MOST RECENT DOSE OF CANCER TREATMENT PRIOR TO AE/SAE ONSET.
     Route: 040
     Dates: start: 20241028
  4. FLUOROURACIL [Suspect]
     Active Substance: FLUOROURACIL
     Indication: Neoplasm malignant
     Route: 040
     Dates: start: 20241028

REACTIONS (1)
  - Leukopenia [Recovered/Resolved]

NARRATIVE: CASE EVENT DATE: 20241209
